FAERS Safety Report 15074737 (Version 1)
Quarter: 2018Q2

REPORT INFORMATION
  Report Type: Spontaneous
  Country: US (occurrence: US)
  Receive Date: 20180627
  Receipt Date: 20180627
  Transmission Date: 20180711
  Serious: No
  Sender: FDA-Public Use
  Company Number: US-SAOL THERAPEUTICS-2017SAO01244

PATIENT
  Age: 72 Year
  Sex: Male
  Weight: 90 kg

DRUGS (13)
  1. BACLOFEN. [Suspect]
     Active Substance: BACLOFEN
     Dosage: 98.08 ?G, \DAY
     Route: 037
     Dates: start: 20170613
  2. TESTOSTERONE. [Concomitant]
     Active Substance: TESTOSTERONE
  3. FISH OIL [Concomitant]
     Active Substance: FISH OIL
  4. PRILOSEC [Concomitant]
     Active Substance: OMEPRAZOLE MAGNESIUM
  5. PROSCAR [Concomitant]
     Active Substance: FINASTERIDE
  6. PROVIGIL [Concomitant]
     Active Substance: MODAFINIL
  7. NITROGLYCERIN. [Concomitant]
     Active Substance: NITROGLYCERIN
  8. FENTANYL. [Suspect]
     Active Substance: FENTANYL
     Dosage: 9.808 MG, \DAY
     Route: 037
     Dates: start: 20170613
  9. CLONIDINE. [Suspect]
     Active Substance: CLONIDINE
     Dosage: 78.47 ?G, \DAY
     Route: 037
     Dates: start: 20170613
  10. LOSARTAN. [Concomitant]
     Active Substance: LOSARTAN
  11. LYRICA [Concomitant]
     Active Substance: PREGABALIN
  12. ONGLYZA [Concomitant]
     Active Substance: SAXAGLIPTIN HYDROCHLORIDE
  13. ASPIRIN. [Concomitant]
     Active Substance: ASPIRIN

REACTIONS (3)
  - Off label use [Unknown]
  - Device infusion issue [Recovered/Resolved]
  - Medication residue present [Recovered/Resolved]

NARRATIVE: CASE EVENT DATE: 20170721
